FAERS Safety Report 10389362 (Version 2)
Quarter: 2014Q3

REPORT INFORMATION
  Report Type: Spontaneous
  Country: AR (occurrence: AR)
  Receive Date: 20140818
  Receipt Date: 20140918
  Transmission Date: 20150326
  Serious: Yes (Other)
  Sender: FDA-Public Use
  Company Number: AR-PFIZER INC-2014226904

PATIENT
  Age: 62 Year
  Sex: Female

DRUGS (1)
  1. SUTENT [Suspect]
     Active Substance: SUNITINIB MALATE
     Indication: METASTATIC RENAL CELL CARCINOMA
     Dosage: 37.5 MG, CYCLIC, SCHEME 4/2
     Dates: start: 20140214

REACTIONS (2)
  - Ovarian disorder [Recovering/Resolving]
  - Uterine disorder [Recovering/Resolving]

NARRATIVE: CASE EVENT DATE: 20140214
